FAERS Safety Report 5763070-4 (Version None)
Quarter: 2008Q2

REPORT INFORMATION
  Report Type: 
  Country: None (occurrence: None)
  Receive Date: 20080609
  Receipt Date: 20080528
  Transmission Date: 20081010
  Serious: Yes (Death, Hospitalization, Other)
  Sender: FDA-Public Use
  Company Number: JP-PFIZER INC-2008026959

PATIENT
  Sex: Female

DRUGS (10)
  1. DIFLUCAN [Suspect]
     Indication: FUNGAL INFECTION
     Dosage: DAILY DOSE:100MG
     Route: 048
     Dates: start: 20080310, end: 20080318
  2. PREDONINE [Concomitant]
     Indication: RHEUMATOID ARTHRITIS
     Route: 048
  3. ASPARA [Concomitant]
     Indication: HYPOKALAEMIA
     Route: 048
  4. MUCODYNE [Concomitant]
     Route: 048
  5. LEVOFLOXACIN [Concomitant]
     Route: 048
  6. CYANOCOBALAMIN [Concomitant]
     Indication: NEUROPATHY PERIPHERAL
     Route: 048
  7. BIOFERMIN [Concomitant]
     Indication: GASTRIC DISORDER
     Route: 048
  8. CALCIUM CARBONATE [Concomitant]
     Route: 048
  9. LAFUTIDINE [Concomitant]
     Route: 048
  10. MAXIPIME [Concomitant]
     Route: 042

REACTIONS (2)
  - CACHEXIA [None]
  - DELIRIUM [None]
